FAERS Safety Report 4694433-6 (Version None)
Quarter: 2005Q2

REPORT INFORMATION
  Report Type: 
  Country: None (occurrence: None)
  Receive Date: 20050614
  Receipt Date: 20050311
  Transmission Date: 20051028
  Serious: No
  Sender: FDA-Public Use
  Company Number: USA050393068

PATIENT
  Age: 64 Year
  Sex: Male
  Weight: 73 kg

DRUGS (4)
  1. CIALIS [Suspect]
     Indication: ERECTILE DYSFUNCTION
     Dosage: 20 MG
     Dates: start: 20050201
  2. FLOMAX MR (TAMSULOSIN HYDROCHLORIDE) [Concomitant]
  3. LIPITOR [Concomitant]
  4. PROSCAR [Concomitant]

REACTIONS (1)
  - DRUG INEFFECTIVE [None]
